FAERS Safety Report 17354488 (Version 1)
Quarter: 2020Q1

REPORT INFORMATION
  Report Type: Spontaneous
  Country: US (occurrence: US)
  Receive Date: 20200130
  Receipt Date: 20200130
  Transmission Date: 20200409
  Serious: Yes (Hospitalization)
  Sender: FDA-Public Use
  Company Number: None

PATIENT
  Age: 69 Year
  Sex: Female

DRUGS (2)
  1. IMATINIB. [Suspect]
     Active Substance: IMATINIB MESYLATE
     Indication: PHILADELPHIA CHROMOSOME POSITIVE
     Route: 048
     Dates: start: 20190401
  2. IMATINIB. [Suspect]
     Active Substance: IMATINIB MESYLATE
     Indication: CHRONIC MYELOID LEUKAEMIA
     Route: 048
     Dates: start: 20190401

REACTIONS (11)
  - Incoherent [None]
  - Delirium [None]
  - Ear pain [None]
  - Burning sensation [None]
  - Herpes zoster [None]
  - Hallucination, visual [None]
  - Therapy cessation [None]
  - Hypersomnia [None]
  - Crying [None]
  - Asthenia [None]
  - Facial pain [None]

NARRATIVE: CASE EVENT DATE: 20200130
